FAERS Safety Report 16215019 (Version 1)
Quarter: 2019Q2

REPORT INFORMATION
  Report Type: Spontaneous
  Country: US (occurrence: US)
  Receive Date: 20190418
  Receipt Date: 20190418
  Transmission Date: 20190711
  Serious: Yes (Disabling)
  Sender: FDA-Public Use
  Company Number: None

PATIENT
  Age: 27 Year
  Sex: Female
  Weight: 97.65 kg

DRUGS (3)
  1. SERTRALINE 50 MG [Suspect]
     Active Substance: SERTRALINE HYDROCHLORIDE
     Indication: DEPRESSION
     Dosage: ?          QUANTITY:1 CAPSULE(S);?
     Route: 048
     Dates: start: 20190315, end: 20190417
  2. ADDERALL [Concomitant]
     Active Substance: AMPHETAMINE ASPARTATE\AMPHETAMINE SULFATE\DEXTROAMPHETAMINE SACCHARATE\DEXTROAMPHETAMINE SULFATE
  3. WELLBUTRIN [Concomitant]
     Active Substance: BUPROPION HYDROCHLORIDE

REACTIONS (14)
  - Tremor [None]
  - Dry mouth [None]
  - Headache [None]
  - Agitation [None]
  - Hypersomnia [None]
  - Asthenia [None]
  - Areflexia [None]
  - Myalgia [None]
  - Confusional state [None]
  - Muscular weakness [None]
  - Vision blurred [None]
  - Speech disorder [None]
  - Hot flush [None]
  - Seizure [None]

NARRATIVE: CASE EVENT DATE: 20190417
